FAERS Safety Report 8263726-8 (Version None)
Quarter: 2012Q2

REPORT INFORMATION
  Report Type: 
  Country: None (occurrence: None)
  Receive Date: 20120405
  Receipt Date: 20120328
  Transmission Date: 20120825
  Serious: Yes (Hospitalization, Other)
  Sender: FDA-Public Use
  Company Number: US-ABBOTT-12P-163-0920346-00

PATIENT
  Sex: Female
  Weight: 88.53 kg

DRUGS (14)
  1. HUMIRA [Suspect]
     Indication: RHEUMATOID ARTHRITIS
     Route: 058
     Dates: start: 20090101, end: 20111101
  2. SIMVASTATIN [Concomitant]
     Indication: BLOOD CHOLESTEROL INCREASED
  3. FLAGYL [Suspect]
     Indication: COLITIS
     Route: 042
     Dates: start: 20110904, end: 20110904
  4. HUMIRA [Suspect]
     Route: 058
     Dates: start: 20111201, end: 20120101
  5. FLAGYL [Suspect]
     Route: 042
     Dates: start: 20111101, end: 20111101
  6. AMITRIPTYLINE HCL [Concomitant]
     Indication: MIGRAINE
  7. VITAMIN D [Concomitant]
     Indication: PRODUCT USED FOR UNKNOWN INDICATION
  8. HUMIRA [Suspect]
     Route: 058
     Dates: start: 20120301
  9. FLAGYL [Suspect]
     Indication: DIVERTICULITIS
     Route: 048
     Dates: start: 20110905
  10. LANSOPRAZOLE [Concomitant]
     Indication: GASTROOESOPHAGEAL REFLUX DISEASE
  11. CALCIUM CARBONATE [Concomitant]
     Indication: PRODUCT USED FOR UNKNOWN INDICATION
  12. METHOTREXATE [Suspect]
     Indication: RHEUMATOID ARTHRITIS
     Dates: end: 20120201
  13. AMITRIPTYLINE HCL [Concomitant]
     Indication: PROPHYLAXIS
  14. ATENOLOL [Concomitant]
     Indication: HYPERTENSION

REACTIONS (13)
  - NASOPHARYNGITIS [None]
  - NAIL INFECTION [None]
  - VOMITING [None]
  - HEADACHE [None]
  - ABDOMINAL PAIN [None]
  - DEHYDRATION [None]
  - HAEMATOCHEZIA [None]
  - NAUSEA [None]
  - DIZZINESS [None]
  - DIVERTICULITIS [None]
  - ASTHMA [None]
  - SINUSITIS [None]
  - COLITIS [None]
